FAERS Safety Report 7727466-3 (Version None)
Quarter: 2011Q3

REPORT INFORMATION
  Report Type: 
  Country: None (occurrence: None)
  Receive Date: 20110902
  Receipt Date: 20110823
  Transmission Date: 20111222
  Serious: Yes (Other)
  Sender: FDA-Public Use
  Company Number: US-BAYER-2011-031408

PATIENT
  Age: 25 Year
  Sex: Female
  Weight: 52.154 kg

DRUGS (12)
  1. YASMIN [Suspect]
     Dosage: UNK
     Dates: start: 20030601, end: 20090701
  2. DROSPIRENONE AND ETHINYL ESTRADIOL [Suspect]
     Dosage: UNK
     Dates: start: 20030601, end: 20090701
  3. CALCIUM CARBONATE [Concomitant]
     Dosage: UNK UNK, QD
  4. VITAMIN E [Concomitant]
     Dosage: UNK UNK, QD
  5. LORATADINE AND PSEUDOEPHEDRINE SULFATE [Concomitant]
     Dosage: UNK UNK, QD
  6. D-MANNOSE [Concomitant]
     Dosage: UNK UNK, QD
  7. FISH OIL [Concomitant]
     Dosage: UNK UNK, QD
  8. ALIMENTARY TRACT AND METABOLISM [Concomitant]
     Dosage: UNK UNK, QD
  9. ASCORBIC ACID [Concomitant]
     Dosage: UNK UNK, QD
  10. CRANBERRY [Concomitant]
     Dosage: UNK UNK, QD
  11. VACCINIUM MYRTILLUS [Concomitant]
     Dosage: UNK UNK, QD
  12. CLARITIN-D 24 HOUR [Concomitant]
     Dosage: UNK UNK, QD

REACTIONS (5)
  - INJURY [None]
  - CYSTITIS [None]
  - PAIN [None]
  - CHOLELITHIASIS [None]
  - NEPHROLITHIASIS [None]
